FAERS Safety Report 12675757 (Version 1)
Quarter: 2016Q3

REPORT INFORMATION
  Report Type: Spontaneous
  Country: US (occurrence: US)
  Receive Date: 20160823
  Receipt Date: 20160823
  Transmission Date: 20161109
  Serious: No
  Sender: FDA-Public Use
  Company Number: US-JAZZ-2016-US-006680

PATIENT
  Sex: Female

DRUGS (31)
  1. XYREM [Suspect]
     Active Substance: SODIUM OXYBATE
     Dosage: 3 G, QD
     Route: 048
     Dates: start: 201512, end: 201603
  2. CRESTOR [Concomitant]
     Active Substance: ROSUVASTATIN CALCIUM
  3. HYDROXYZINE [Concomitant]
     Active Substance: HYDROXYZINE\HYDROXYZINE HYDROCHLORIDE
  4. LAMOTRIGINE. [Concomitant]
     Active Substance: LAMOTRIGINE
  5. FLAXSEED [Concomitant]
     Active Substance: FLAX SEED
  6. OMEPRAZOLE. [Concomitant]
     Active Substance: OMEPRAZOLE
  7. PHENYLEPHRINE HCL [Concomitant]
     Active Substance: PHENYLEPHRINE HYDROCHLORIDE
  8. TRAZODONE HYDROCHLORIDE. [Concomitant]
     Active Substance: TRAZODONE HYDROCHLORIDE
  9. LEXAPRO [Concomitant]
     Active Substance: ESCITALOPRAM OXALATE
  10. NIFEDIPINE. [Concomitant]
     Active Substance: NIFEDIPINE
  11. VITAMIN E [Concomitant]
     Active Substance: .ALPHA.-TOCOPHEROL
  12. XYREM [Suspect]
     Active Substance: SODIUM OXYBATE
     Dosage: 3 G, BID
     Route: 048
     Dates: start: 201406, end: 2015
  13. ESTROGEN [Concomitant]
     Active Substance: ESTRONE\SUS SCROFA OVARY
  14. PROTRIPTYLINE HCL [Concomitant]
  15. RISPERDAL [Concomitant]
     Active Substance: RISPERIDONE
  16. PREVACID [Concomitant]
     Active Substance: LANSOPRAZOLE
  17. VITAMIN D [Concomitant]
     Active Substance: CHOLECALCIFEROL
  18. WELLBUTRIN [Concomitant]
     Active Substance: BUPROPION HYDROCHLORIDE
  19. XYREM [Suspect]
     Active Substance: SODIUM OXYBATE
     Indication: CATAPLEXY
     Dosage: 3 G, BID
     Route: 048
     Dates: start: 201011, end: 2011
  20. ABILIFY [Concomitant]
     Active Substance: ARIPIPRAZOLE
  21. ADDERALL [Concomitant]
     Active Substance: AMPHETAMINE ASPARTATE\AMPHETAMINE SULFATE\DEXTROAMPHETAMINE SACCHARATE\DEXTROAMPHETAMINE SULFATE
  22. ESTRATEST [Concomitant]
     Active Substance: ESTROGENS, ESTERIFIED\METHYLTESTOSTERONE
  23. VITAMIN A [Concomitant]
     Active Substance: VITAMIN A
  24. LIPITOR [Concomitant]
     Active Substance: ATORVASTATIN CALCIUM
  25. ALEVE [Concomitant]
     Active Substance: NAPROXEN SODIUM
  26. PROGESTERONE. [Concomitant]
     Active Substance: PROGESTERONE
  27. ADVIL [Concomitant]
     Active Substance: IBUPROFEN
  28. MULTIVITAMINS WITH IRON [Concomitant]
     Active Substance: IRON\VITAMINS
  29. XYREM [Suspect]
     Active Substance: SODIUM OXYBATE
     Indication: NARCOLEPSY
     Dosage: 2.25 G, BID
     Route: 048
     Dates: start: 201011, end: 201011
  30. NEXIUM [Concomitant]
     Active Substance: ESOMEPRAZOLE MAGNESIUM
  31. VITAMIN B COMPLEX [Concomitant]
     Active Substance: CYANOCOBALAMIN\DEXPANTHENOL\NIACINAMIDE\PYRIDOXINE HYDROCHLORIDE\RIBOFLAVIN 5^-PHOSPHATE SODIUM\THIAMINE HYDROCHLORIDE\VITAMIN B COMPLEX

REACTIONS (3)
  - Restless legs syndrome [Not Recovered/Not Resolved]
  - Condition aggravated [Not Recovered/Not Resolved]
  - Vitreous floaters [Not Recovered/Not Resolved]
